FAERS Safety Report 13617398 (Version 1)
Quarter: 2017Q2

REPORT INFORMATION
  Report Type: Spontaneous
  Country: US (occurrence: US)
  Receive Date: 20170606
  Receipt Date: 20170606
  Transmission Date: 20170830
  Serious: No
  Sender: FDA-Public Use
  Company Number: US-SA-2017SA031581

PATIENT
  Age: 70 Year
  Sex: Female

DRUGS (3)
  1. LANTUS SOLOSTAR [Suspect]
     Active Substance: INSULIN GLARGINE
     Indication: TYPE 2 DIABETES MELLITUS
     Route: 065
     Dates: start: 2016
  2. SOLOSTAR [Suspect]
     Active Substance: DEVICE
     Indication: TYPE 2 DIABETES MELLITUS
     Dates: start: 2016
  3. HUMALOG [Concomitant]
     Active Substance: INSULIN LISPRO
     Dosage: DOSE:3 OR 4 UNITS

REACTIONS (5)
  - Muscle spasms [Unknown]
  - Device issue [Unknown]
  - Blood glucose increased [Unknown]
  - Product use issue [Unknown]
  - Wrong technique in product usage process [Unknown]
